FAERS Safety Report 8316543-4 (Version None)
Quarter: 2012Q2

REPORT INFORMATION
  Report Type: 
  Country: None (occurrence: None)
  Receive Date: 20120427
  Receipt Date: 20120420
  Transmission Date: 20120825
  Serious: Yes (Other)
  Sender: FDA-Public Use
  Company Number: PHHY2011AR96466

PATIENT
  Sex: Female

DRUGS (2)
  1. FOLIC ACID [Concomitant]
  2. GLEEVEC [Suspect]
     Indication: CHRONIC MYELOID LEUKAEMIA
     Dosage: 400 MG, QD
     Dates: start: 20100301

REACTIONS (13)
  - GASTROINTESTINAL DISORDER [None]
  - NAUSEA [None]
  - FATIGUE [None]
  - PRURITUS [None]
  - COLONIC POLYP [None]
  - PAIN [None]
  - BLISTER [None]
  - BLOOD PRESSURE DECREASED [None]
  - SKIN DISCOLOURATION [None]
  - DERMATITIS [None]
  - RASH [None]
  - EYE PAIN [None]
  - STRESS [None]
